FAERS Safety Report 7654942-4 (Version None)
Quarter: 2011Q3

REPORT INFORMATION
  Report Type: 
  Country: None (occurrence: None)
  Receive Date: 20110729
  Receipt Date: 20110714
  Transmission Date: 20111222
  Serious: Yes (Other)
  Sender: FDA-Public Use
  Company Number: 2011SP033083

PATIENT
  Age: 31 Year
  Sex: Female

DRUGS (1)
  1. IMPLANON [Suspect]
     Indication: PRODUCT USED FOR UNKNOWN INDICATION
     Dates: start: 20110107, end: 20110701

REACTIONS (3)
  - BREAST CANCER [None]
  - PROGESTERONE RECEPTOR ASSAY POSITIVE [None]
  - OESTROGEN RECEPTOR ASSAY POSITIVE [None]
